FAERS Safety Report 7495390-X (Version None)
Quarter: 2011Q2

REPORT INFORMATION
  Report Type: 
  Country: None (occurrence: None)
  Receive Date: 20110513
  Receipt Date: 20110502
  Transmission Date: 20111010
  Serious: Yes (Other)
  Sender: FDA-Public Use
  Company Number: 1000020751

PATIENT
  Age: 79 Year
  Sex: Female

DRUGS (7)
  1. NICARDIPINE HYDROCHLORIDE [Suspect]
     Indication: HYPERTENSION
     Dosage: ORAL
     Route: 048
  2. ALLOPURINOL [Suspect]
  3. PRAZOSIN HCL [Suspect]
  4. LODOZ (BISOPROLOL FUMARATE, HYDROCHLOROTHIAZIDE) [Suspect]
  5. IRBESARTAN AND HYDROCHLOROTHIAZIDE [Suspect]
     Indication: HYPERTENSION
     Dosage: ORAL
     Route: 048
  6. NEBIVOLOL HCL [Suspect]
     Dosage: ORAL
     Route: 048
  7. MEDIATOR (BENFLUOREX HYDROCHLORIDE) [Suspect]
     Indication: HYPERGLYCAEMIA
     Dosage: ORAL
     Route: 048
     Dates: start: 20080117, end: 20091001

REACTIONS (1)
  - AORTIC VALVE DISEASE [None]
